FAERS Safety Report 10149961 (Version 1)
Quarter: 2014Q2

REPORT INFORMATION
  Report Type: Spontaneous
  Country: US (occurrence: None)
  Receive Date: 20140501
  Receipt Date: 20140501
  Transmission Date: 20141212
  Serious: Yes (Death)
  Sender: FDA-Public Use
  Company Number: None

PATIENT
  Sex: Male

DRUGS (1)
  1. ENBREL SURECLICK [Suspect]
     Dosage: 50 MG WEEKLY SUB-Q
     Route: 058
     Dates: start: 20130128, end: 20140430

REACTIONS (1)
  - Death [None]
